FAERS Safety Report 5860395-9 (Version None)
Quarter: 2008Q3

REPORT INFORMATION
  Report Type: 
  Country: None (occurrence: None)
  Receive Date: 20080827
  Receipt Date: 20080820
  Transmission Date: 20090109
  Serious: Yes (Other)
  Sender: FDA-Public Use
  Company Number: JP-PFIZER INC-2008070073

PATIENT
  Age: 62 Year
  Sex: Female

DRUGS (5)
  1. SOLANAX [Suspect]
     Route: 048
  2. RIVOTRIL [Concomitant]
     Route: 048
  3. DEPAKENE [Concomitant]
     Route: 048
  4. PAXIL [Concomitant]
     Route: 048
  5. LENDORMIN [Concomitant]
     Route: 048

REACTIONS (1)
  - MEIGE'S SYNDROME [None]
